FAERS Safety Report 20820048 (Version 3)
Quarter: 2022Q2

REPORT INFORMATION
  Report Type: Report from Study
  Country: BR (occurrence: BR)
  Receive Date: 20220512
  Receipt Date: 20220531
  Transmission Date: 20220721
  Serious: Yes (Hospitalization, Other)
  Sender: FDA-Public Use
  Company Number: BR-NOVARTISPH-NVSC2022BR107588

PATIENT
  Age: 51 Year
  Sex: Female
  Weight: 113 kg

DRUGS (4)
  1. PARLODEL [Suspect]
     Active Substance: BROMOCRIPTINE MESYLATE
     Indication: Brain neoplasm
     Dosage: 2.5 MG, QD (WITH 28 TABLETS) (1 TABLET QD)
     Route: 048
     Dates: start: 198506
  2. SIMVASTATIN [Suspect]
     Active Substance: SIMVASTATIN
     Indication: Blood cholesterol increased
     Dosage: 1 DOSAGE FORM, QD
     Route: 048
     Dates: start: 2008, end: 2009
  3. SIMVASTATIN [Suspect]
     Active Substance: SIMVASTATIN
     Dosage: 1 DOSAGE FORM, QD (STOPPED IN 7 DAYS)
     Route: 048
     Dates: start: 202111
  4. PURAN [Concomitant]
     Active Substance: LEVOTHYROXINE SODIUM
     Indication: Thyroid disorder
     Dosage: 150 MG, QD (1 TABLET)
     Route: 048
     Dates: start: 1985

REACTIONS (23)
  - Pulmonary thrombosis [Recovered/Resolved]
  - Paralysis [Recovered/Resolved]
  - Weight decreased [Not Recovered/Not Resolved]
  - Noninfective encephalitis [Recovered/Resolved]
  - Neuritis [Recovered/Resolved]
  - Nervousness [Not Recovered/Not Resolved]
  - Deafness [Recovered/Resolved]
  - Gait inability [Recovered/Resolved]
  - Anxiety [Not Recovered/Not Resolved]
  - Inflammation [Recovered/Resolved]
  - Noninfective encephalitis [Recovered/Resolved]
  - Neuritis [Recovered/Resolved]
  - Headache [Recovered/Resolved]
  - Head discomfort [Recovered/Resolved]
  - Pain [Recovered/Resolved]
  - Ear disorder [Recovered/Resolved]
  - Feeling abnormal [Unknown]
  - Feeling of despair [Unknown]
  - Hypokinesia [Unknown]
  - Blood cholesterol increased [Not Recovered/Not Resolved]
  - Expired product administered [Not Recovered/Not Resolved]
  - Product availability issue [Unknown]
  - Product use in unapproved indication [Unknown]

NARRATIVE: CASE EVENT DATE: 20091101
